FAERS Safety Report 10442428 (Version 1)
Quarter: 2014Q3

REPORT INFORMATION
  Report Type: Spontaneous
  Country: US (occurrence: None)
  Receive Date: 20140908
  Receipt Date: 20140908
  Transmission Date: 20150326
  Serious: Yes (Hospitalization)
  Sender: FDA-Public Use
  Company Number: IPC201409-000460

PATIENT
  Age: 64 Year
  Sex: Male

DRUGS (8)
  1. METFORMIN HYDROCHLORIDE (METFORMIN HYDROCHLORIDE) [Suspect]
     Active Substance: METFORMIN HYDROCHLORIDE
  2. SIMVASTATIN. [Suspect]
     Active Substance: SIMVASTATIN
     Indication: HYPERCHOLESTEROLAEMIA
  3. ASPIRIN. [Suspect]
     Active Substance: ASPIRIN
  4. LISINOPRIL. [Suspect]
     Active Substance: LISINOPRIL
  5. LEVOTHYROXINE [Suspect]
     Active Substance: LEVOTHYROXINE
  6. CARVEDILOL. [Suspect]
     Active Substance: CARVEDILOL
  7. INSULIN GLARGINE [Suspect]
     Active Substance: INSULIN GLARGINE
  8. INSULIN ASPART [Suspect]
     Active Substance: INSULIN ASPART

REACTIONS (3)
  - Glycosylated haemoglobin increased [None]
  - Myopathy [None]
  - Muscle atrophy [None]
